FAERS Safety Report 24783637 (Version 1)
Quarter: 2024Q4

REPORT INFORMATION
  Report Type: Spontaneous
  Country: US (occurrence: US)
  Receive Date: 20241227
  Receipt Date: 20241227
  Transmission Date: 20250114
  Serious: Yes (Other)
  Sender: ASTELLAS
  Company Number: US-ASTELLAS-2024-AER-027402

PATIENT
  Age: 3 Year
  Sex: Female

DRUGS (12)
  1. TACROLIMUS [Suspect]
     Active Substance: TACROLIMUS
     Indication: Heart transplant
     Dosage: LEVEL 6.8-9.1, DISCONTINUED DUE TO DIARRHEA
     Route: 065
     Dates: start: 201909, end: 202001
  2. TACROLIMUS [Suspect]
     Active Substance: TACROLIMUS
     Dosage: DISCONTINUED DUE TO KIDNEY INJURY
     Route: 065
     Dates: start: 202004, end: 202005
  3. TACROLIMUS [Suspect]
     Active Substance: TACROLIMUS
     Dosage: LEVEL 3.8-6.8
     Route: 065
     Dates: start: 202008, end: 202101
  4. TACROLIMUS [Suspect]
     Active Substance: TACROLIMUS
     Dosage: LEVEL 3.8-6.8
     Route: 065
     Dates: start: 202101, end: 202112
  5. MYCOPHENOLATE MOFETIL [Concomitant]
     Active Substance: MYCOPHENOLATE MOFETIL
     Indication: Heart transplant
     Route: 065
     Dates: start: 201909, end: 202001
  6. MYCOPHENOLATE MOFETIL [Concomitant]
     Active Substance: MYCOPHENOLATE MOFETIL
     Route: 065
     Dates: start: 202004, end: 202008
  7. MYCOPHENOLATE MOFETIL [Concomitant]
     Active Substance: MYCOPHENOLATE MOFETIL
     Dosage: REDUCED TO 20 MG/KG IN DECEMBER 2020; DISCONTINUED IN JANUARY 2021 DUE TO DIARRHEA
     Route: 065
     Dates: start: 202008, end: 202101
  8. PREDNISONE [Concomitant]
     Active Substance: PREDNISONE
     Indication: Heart transplant
     Route: 065
     Dates: start: 201909, end: 202001
  9. PREDNISONE [Concomitant]
     Active Substance: PREDNISONE
     Route: 065
     Dates: start: 202001, end: 202004
  10. AZATHIOPRINE [Concomitant]
     Active Substance: AZATHIOPRINE
     Indication: Heart transplant
     Route: 065
     Dates: start: 202101, end: 202112
  11. CYCLOSPORINE [Concomitant]
     Active Substance: CYCLOSPORINE
     Indication: Heart transplant
     Dosage: LEVEL 80-149
     Route: 042
     Dates: start: 202001, end: 202004
  12. CYCLOSPORINE [Concomitant]
     Active Substance: CYCLOSPORINE
     Route: 042
     Dates: start: 202112, end: 202204

REACTIONS (13)
  - Cutaneous mucormycosis [Unknown]
  - COVID-19 [Unknown]
  - Epstein-Barr viraemia [Recovered/Resolved]
  - Abdominal abscess [Recovered/Resolved]
  - Pelvic abscess [Recovered/Resolved]
  - Gastrointestinal haemorrhage [Recovered/Resolved]
  - Post transplant lymphoproliferative disorder [Recovered/Resolved]
  - Enterococcal infection [Unknown]
  - Clostridial infection [Unknown]
  - Enterococcal infection [Unknown]
  - Fistula of small intestine [Unknown]
  - Pseudomonas infection [Unknown]
  - Fungal infection [Unknown]
